FAERS Safety Report 8405951-9 (Version None)
Quarter: 2012Q2

REPORT INFORMATION
  Report Type: 
  Country: None (occurrence: None)
  Receive Date: 20120529
  Receipt Date: 20010403
  Transmission Date: 20120825
  Serious: Yes (Other)
  Sender: FDA-Public Use
  Company Number: 02100-JPN-01-0034

PATIENT
  Age: 85 Year
  Sex: Male
  Weight: 42 kg

DRUGS (7)
  1. D ALFA (ALFACALCIDOL) CAPSULE, .5 UG 04/08/1997 TO 03/02/2001 [Concomitant]
  2. MEFENAMIC ACID [Suspect]
     Dosage: 250 MG, TID, ORAL
     Route: 048
     Dates: start: 19970408, end: 20010302
  3. PLETAL [Suspect]
     Indication: PERIPHERAL ARTERIAL OCCLUSIVE DISEASE
     Dosage: 50 MG, BID, ORAL 50 MG, TID, ORAL
     Route: 048
     Dates: start: 19990805, end: 20010302
  4. PLETAL [Suspect]
     Indication: PERIPHERAL ARTERIAL OCCLUSIVE DISEASE
     Dosage: 50 MG, BID, ORAL 50 MG, TID, ORAL
     Route: 048
     Dates: start: 19990701, end: 19990804
  5. CIMETIDINE [Suspect]
     Dosage: 200 MG, QD, ORAL
     Route: 048
     Dates: start: 19990819, end: 20010302
  6. ASPARA-CA (ASPARTATE CALCIUM) TABLET, 200 MG 04/08/1997 TO 03/02/2001 [Concomitant]
  7. LASIX [Suspect]
     Dosage: 20 MG, QD, ORAL
     Route: 048
     Dates: start: 20010105, end: 20010302

REACTIONS (4)
  - ERYTHEMA MULTIFORME [None]
  - CONJUNCTIVAL EROSION [None]
  - STOMATITIS [None]
  - OEDEMA [None]
